FAERS Safety Report 6666732-X (Version None)
Quarter: 2010Q2

REPORT INFORMATION
  Report Type: 
  Country: None (occurrence: None)
  Receive Date: 20100401
  Receipt Date: 20100401
  Transmission Date: 20101027
  Serious: Yes (Other)
  Sender: FDA-Public Use
  Company Number: None

PATIENT
  Age: 35 Year
  Sex: Female
  Weight: 66.2252 kg

DRUGS (1)
  1. WARFARIN SODIUM [Suspect]
     Indication: DEEP VEIN THROMBOSIS
     Dosage: 5MG 5 DAYS A WEEK MOUTH; 7.5MG 2 DAYS A WEEK MOUTH
     Route: 048
     Dates: start: 20091101, end: 20100101

REACTIONS (2)
  - INTERNATIONAL NORMALISED RATIO INCREASED [None]
  - PRODUCT SUBSTITUTION ISSUE [None]
